FAERS Safety Report 8268519-3 (Version None)
Quarter: 2012Q2

REPORT INFORMATION
  Report Type: 
  Country: None (occurrence: None)
  Receive Date: 20120409
  Receipt Date: 20120402
  Transmission Date: 20120825
  Serious: Yes (Hospitalization)
  Sender: FDA-Public Use
  Company Number: US-GLAXOSMITHKLINE-A0964646A

PATIENT
  Age: 52 Year
  Sex: Female

DRUGS (7)
  1. FLOLAN [Suspect]
     Indication: PULMONARY ARTERIAL HYPERTENSION
     Dosage: 72.4NGKM UNKNOWN
     Dates: start: 20100520
  2. NOVOLOG [Concomitant]
  3. UNKNOWN [Concomitant]
  4. ADCIRCA [Concomitant]
  5. FUROSEMIDE [Concomitant]
  6. SPIRONOLACTONE [Concomitant]
  7. CLARITIN [Concomitant]

REACTIONS (5)
  - PAIN IN JAW [None]
  - DEVICE RELATED INFECTION [None]
  - DIARRHOEA [None]
  - FACIAL PAIN [None]
  - INFUSION SITE INFECTION [None]
